FAERS Safety Report 6901145-4 (Version None)
Quarter: 2010Q3

REPORT INFORMATION
  Report Type: 
  Country: None (occurrence: None)
  Receive Date: 20100803
  Receipt Date: 20100719
  Transmission Date: 20110219
  Serious: Yes (Hospitalization)
  Sender: FDA-Public Use
  Company Number: US-BAYER-201015394NA

PATIENT
  Age: 31 Year
  Sex: Female
  Weight: 118 kg

DRUGS (16)
  1. YAZ [Suspect]
     Indication: HORMONE LEVEL ABNORMAL
     Route: 048
     Dates: start: 20060801, end: 20061201
  2. YASMIN [Suspect]
     Indication: HORMONE LEVEL ABNORMAL
     Route: 048
     Dates: start: 20060801, end: 20061201
  3. DROSPIRENONE AND EHTINYL ESTRADIOL [Suspect]
     Indication: PRODUCT USED FOR UNKNOWN INDICATION
     Route: 048
     Dates: start: 20060801
  4. VENTOLIN [Concomitant]
  5. PROVENTIL [Concomitant]
  6. ADVIL LIQUI-GELS [Concomitant]
  7. ALEVE (CAPLET) [Concomitant]
  8. NAPROXEN [Concomitant]
  9. ALBUTEROL [Concomitant]
  10. METFORMIN HCL [Concomitant]
     Dosage: UNIT DOSE: 500 MG
     Route: 048
  11. LOVENOX [Concomitant]
  12. CIPRO [Concomitant]
  13. DECADRON [Concomitant]
     Route: 042
  14. HEPARIN [Concomitant]
  15. COUMADIN [Concomitant]
     Dosage: AT NIGHT
     Route: 048
  16. ADVAIR DISKUS 100/50 [Concomitant]
     Dosage: 250/50 1 PUFF INHALED PO TWICE DAILY

REACTIONS (9)
  - BACK PAIN [None]
  - CHEST PAIN [None]
  - DEEP VEIN THROMBOSIS [None]
  - DIZZINESS [None]
  - DYSPNOEA [None]
  - HYPERHIDROSIS [None]
  - PAIN IN EXTREMITY [None]
  - PALPITATIONS [None]
  - PULMONARY EMBOLISM [None]
